FAERS Safety Report 16205726 (Version 1)
Quarter: 2019Q2

REPORT INFORMATION
  Report Type: Spontaneous
  Country: US (occurrence: US)
  Receive Date: 20190312
  Receipt Date: 20190312
  Transmission Date: 20190711
  Serious: No
  Sender: FDA-Public Use
  Company Number: None

PATIENT
  Age: 77 Year
  Sex: Female
  Weight: 63.5 kg

DRUGS (16)
  1. OMEGA 3 [Concomitant]
     Active Substance: OMEGA-3 FATTY ACIDS
  2. FISHFLAX-BORAGE OIL [Concomitant]
  3. COD LIVER OIL [Concomitant]
     Active Substance: COD LIVER OIL
  4. ESTROVEN [Concomitant]
     Active Substance: DIETARY SUPPLEMENT
  5. VENTOLIN [Concomitant]
     Active Substance: ALBUTEROL SULFATE
  6. VITAMIN B COMPLEX [Concomitant]
     Active Substance: CYANOCOBALAMIN\DEXPANTHENOL\NIACINAMIDE\PYRIDOXINE HYDROCHLORIDE\RIBOFLAVIN 5^-PHOSPHATE SODIUM\THIAMINE HYDROCHLORIDE\VITAMIN B COMPLEX
  7. LOREZPAM [Concomitant]
  8. AMITRIPYLINE [Concomitant]
  9. ZAFIRLUKAST. [Concomitant]
     Active Substance: ZAFIRLUKAST
  10. BUTCHER BROOM [Concomitant]
     Active Substance: RUSCUS ACULEATUS ROOT
  11. LYRICA [Suspect]
     Active Substance: PREGABALIN
     Indication: PROCEDURAL PAIN
     Dosage: ?          QUANTITY:1 DF DOSAGE FORM;?
     Route: 048
     Dates: start: 20180415, end: 20180416
  12. MCCOMBS DETOX CANADIAN PLAN [Concomitant]
  13. PROBIOTICS-CANDIDA VITAL [Concomitant]
  14. COQ10 [Concomitant]
     Active Substance: UBIDECARENONE
  15. CAL 600-D3 [Concomitant]
  16. PRO-BIOTIC FLORA [Concomitant]

REACTIONS (3)
  - Oral discomfort [None]
  - Malaise [None]
  - Cheilitis [None]

NARRATIVE: CASE EVENT DATE: 20180415
